FAERS Safety Report 14755356 (Version 1)
Quarter: 2018Q2

REPORT INFORMATION
  Report Type: Spontaneous
  Country: DE (occurrence: DE)
  Receive Date: 20180413
  Receipt Date: 20180413
  Transmission Date: 20180711
  Serious: Yes (Other)
  Sender: FDA-Public Use
  Company Number: DE-LUPIN PHARMACEUTICALS INC.-2017-07274

PATIENT
  Age: 59 Year
  Sex: Female

DRUGS (10)
  1. QUETIAPINE. [Suspect]
     Active Substance: QUETIAPINE
     Indication: NERVOUS SYSTEM DISORDER
     Dosage: 200 MG, QD
     Route: 065
     Dates: start: 2016
  2. LORAZEPAM. [Suspect]
     Active Substance: LORAZEPAM
     Indication: ANXIETY
     Dosage: 5 MG, QD
     Route: 065
     Dates: start: 2016
  3. RISPERIDONE. [Suspect]
     Active Substance: RISPERIDONE
     Indication: NERVOUS SYSTEM DISORDER
     Dosage: 4 MG, QD
     Route: 065
     Dates: start: 2016
  4. METHYLPREDNISOLONE. [Suspect]
     Active Substance: METHYLPREDNISOLONE
     Indication: AUTOIMMUNE THYROIDITIS
     Dosage: 5 MG ? 500 MG FOR FIVE CONSECUTIVE DAYS
     Route: 065
     Dates: start: 2016
  5. ARIPIPRAZOLE. [Suspect]
     Active Substance: ARIPIPRAZOLE
     Indication: NERVOUS SYSTEM DISORDER
     Dosage: 15 MG, QD
     Route: 065
     Dates: start: 2016
  6. METHYLPREDNISOLONE. [Suspect]
     Active Substance: METHYLPREDNISOLONE
     Indication: HASHIMOTO^S ENCEPHALOPATHY
  7. AMISULPRIDE [Suspect]
     Active Substance: AMISULPRIDE
     Indication: NERVOUS SYSTEM DISORDER
     Dosage: 400 MG, QD
     Route: 065
     Dates: start: 2016
  8. VENLAFAXINE [Suspect]
     Active Substance: VENLAFAXINE HYDROCHLORIDE
     Indication: DEPRESSION
     Dosage: 150 MG, QD
     Route: 065
     Dates: start: 2016
  9. CITALOPRAM [Suspect]
     Active Substance: CITALOPRAM HYDROBROMIDE
     Indication: DEPRESSION
     Dosage: 20 MG, QD
     Route: 065
     Dates: start: 2016
  10. FLUPENTIXOL [Suspect]
     Active Substance: FLUPENTIXOL
     Indication: NERVOUS SYSTEM DISORDER
     Dosage: 1.5 MG, QD
     Route: 065
     Dates: start: 2016

REACTIONS (1)
  - Drug ineffective [Unknown]
